FAERS Safety Report 10231524 (Version 1)
Quarter: 2014Q2

REPORT INFORMATION
  Report Type: Spontaneous
  Country: GB (occurrence: GB)
  Receive Date: 20140611
  Receipt Date: 20140611
  Transmission Date: 20141212
  Serious: Yes (Other)
  Sender: FDA-Public Use
  Company Number: PHHY2014GB068844

PATIENT
  Age: 48 Year
  Sex: Female

DRUGS (1)
  1. CARBOPLATIN [Suspect]
     Indication: OVARIAN ENDOMETRIOID CARCINOMA
     Dosage: TOTAL DOSE-740 MG,

REACTIONS (6)
  - Papilloedema [Unknown]
  - Optic atrophy [Unknown]
  - Retinal haemorrhage [Unknown]
  - Vision blurred [Unknown]
  - Neutropenia [Unknown]
  - Thrombocytopenia [Unknown]
